FAERS Safety Report 8475430-1 (Version None)
Quarter: 2012Q2

REPORT INFORMATION
  Report Type: 
  Country: None (occurrence: None)
  Receive Date: 20120628
  Receipt Date: 20120615
  Transmission Date: 20120825
  Serious: No
  Sender: FDA-Public Use
  Company Number: US-ASTRAZENECA-2012SE40565

PATIENT
  Sex: Male

DRUGS (4)
  1. SEROQUEL [Suspect]
     Indication: INSOMNIA
     Route: 048
     Dates: start: 20111101, end: 20110101
  2. MIRTAZAPINE [Concomitant]
     Indication: BIPOLAR DISORDER
  3. CLONAZEPAM [Concomitant]
  4. SEROQUEL [Suspect]
     Route: 048
     Dates: start: 20120201

REACTIONS (3)
  - OFF LABEL USE [None]
  - DRUG INEFFECTIVE FOR UNAPPROVED INDICATION [None]
  - DIZZINESS [None]
